FAERS Safety Report 9394191 (Version 2)
Quarter: 2013Q4

REPORT INFORMATION
  Report Type: Report from Study
  Country: US (occurrence: US)
  Receive Date: 20130711
  Receipt Date: 20131025
  Transmission Date: 20140711
  Serious: Yes (Hospitalization)
  Sender: FDA-Public Use
  Company Number: US-009507513-1307USA003188

PATIENT
  Age: 78 Year
  Sex: Male
  Weight: 84.6 kg

DRUGS (10)
  1. VORINOSTAT [Suspect]
     Indication: CHRONIC MYELOMONOCYTIC LEUKAEMIA
     Dosage: 300 MG, BID, ON DAYS 3-9 (CYCLE=28 DAYS)
     Route: 048
     Dates: start: 20130523, end: 20130529
  2. VORINOSTAT [Suspect]
     Dosage: 300 MG, BID
     Route: 048
     Dates: start: 20130620
  3. VORINOSTAT [Suspect]
     Dosage: 300 MG, BID ON DAYS 3-9; CYCLE 5
     Route: 048
     Dates: start: 20131010, end: 20131016
  4. AZACITIDINE [Suspect]
     Indication: CHRONIC MYELOMONOCYTIC LEUKAEMIA
     Dosage: 75 MG/M2 SQ OR IV ON DAYS 1-7 OR 75MG/M2 SQ OR IV ON DAYS 1-5 AND DAYS 8-9
     Dates: start: 20130521, end: 20130527
  5. AZACITIDINE [Suspect]
     Dosage: 75 MG/M2 SQ OR IV ON DAYS 1-7 OR 75MG/M2 SQ OR IV ON DAYS 1-5 AND DAYS 8-9
     Dates: start: 20130618, end: 20130620
  6. AZACITIDINE [Suspect]
     Dosage: 75 MG/M2, SQ OR IV ON DAYS 1-7 OR 75 MG/M2 SQ OR IV ON DAYS 1-5 AND DAYS 8-9; CYCLE 5
     Dates: start: 20131008
  7. ALLOPURINOL [Suspect]
  8. OXYCODONE [Suspect]
  9. PRILOSEC [Suspect]
  10. ONDANSETRON [Concomitant]
     Dosage: UNK

REACTIONS (9)
  - Systemic inflammatory response syndrome [Recovered/Resolved with Sequelae]
  - Thrombocytosis [Recovered/Resolved with Sequelae]
  - Pyrexia [Recovered/Resolved with Sequelae]
  - Hypotension [Recovered/Resolved]
  - Oedema peripheral [Recovered/Resolved]
  - Pyrexia [Recovered/Resolved]
  - Abdominal pain [Recovered/Resolved]
  - Sinus bradycardia [Recovered/Resolved]
  - Anaemia [Recovered/Resolved]
